FAERS Safety Report 15090563 (Version 3)
Quarter: 2018Q4

REPORT INFORMATION
  Report Type: Spontaneous
  Country: US (occurrence: US)
  Receive Date: 20180629
  Receipt Date: 20181119
  Transmission Date: 20190204
  Serious: Yes (Other)
  Sender: FDA-Public Use
  Company Number: US-PFIZER INC-2018232985

PATIENT
  Age: 75 Year
  Sex: Female

DRUGS (7)
  1. CALCIUM [Concomitant]
     Active Substance: CALCIUM
     Indication: MACULAR DEGENERATION
     Dosage: UNK
  2. COD LIVER OIL [Concomitant]
     Active Substance: COD LIVER OIL
     Indication: MACULAR DEGENERATION
     Dosage: UNK
  3. OMEPRAZOLE. [Concomitant]
     Active Substance: OMEPRAZOLE
     Dosage: UNK
  4. MAGNESIUM [Concomitant]
     Active Substance: MAGNESIUM
     Indication: MACULAR DEGENERATION
     Dosage: UNK
  5. VITAMIN B [Concomitant]
     Active Substance: VITAMIN B
     Indication: MACULAR DEGENERATION
     Dosage: UNK
  6. IBRANCE [Suspect]
     Active Substance: PALBOCICLIB
     Dosage: UNK, CYCLIC (21 DAY CYCLE)
     Dates: start: 201805
  7. PROBIOTIC [Concomitant]
     Active Substance: PROBIOTICS NOS
     Indication: MACULAR DEGENERATION
     Dosage: UNK

REACTIONS (5)
  - Dizziness [Not Recovered/Not Resolved]
  - White blood cell count decreased [Unknown]
  - Tumour marker increased [Unknown]
  - Asthenia [Recovered/Resolved]
  - Carotid artery occlusion [Unknown]
